FAERS Safety Report 9235714 (Version 6)
Quarter: 2013Q4

REPORT INFORMATION
  Report Type: Spontaneous
  Country: US (occurrence: US)
  Receive Date: 20130417
  Receipt Date: 20131017
  Transmission Date: 20140711
  Serious: Yes (Other)
  Sender: FDA-Public Use
  Company Number: US-009507513-1304USA007178

PATIENT
  Age: 56 Year
  Sex: Female

DRUGS (3)
  1. REBETOL [Suspect]
     Indication: HEPATITIS C
     Dosage: UNK
     Route: 048
     Dates: start: 20130412, end: 20130918
  2. VICTRELIS [Suspect]
     Indication: HEPATITIS C
     Dosage: UNK
     Route: 048
     Dates: start: 20130510, end: 20130918
  3. PEGASYS [Suspect]
     Indication: HEPATITIS C
     Dosage: UNK
     Dates: start: 20130412, end: 20130918

REACTIONS (15)
  - Hallucination [Unknown]
  - Transfusion [Unknown]
  - Red blood cell count decreased [Unknown]
  - Headache [Unknown]
  - Fatigue [Unknown]
  - Fatigue [Unknown]
  - Dry mouth [Unknown]
  - Fatigue [Unknown]
  - Memory impairment [Unknown]
  - Balance disorder [Unknown]
  - Clumsiness [Unknown]
  - Fall [Unknown]
  - Ligament sprain [Unknown]
  - Drug ineffective [Unknown]
  - Viral load [Unknown]
